FAERS Safety Report 9837853 (Version 1)
Quarter: 2014Q1

REPORT INFORMATION
  Report Type: Spontaneous
  Country: US (occurrence: None)
  Receive Date: 20140117
  Receipt Date: 20140117
  Transmission Date: 20141002
  Serious: Yes (Hospitalization)
  Sender: FDA-Public Use
  Company Number: None

PATIENT
  Age: 61 Year
  Sex: Female
  Weight: 59.8 kg

DRUGS (5)
  1. GEMCITABINE [Suspect]
     Indication: BREAST CANCER METASTATIC
     Route: 042
     Dates: start: 20131223, end: 20131223
  2. GEMCITABINE [Suspect]
  3. CARBOPLATIN [Concomitant]
  4. DEXAMETHASONE [Concomitant]
  5. ALOXI (PALONSETRON) [Concomitant]

REACTIONS (4)
  - Asthenia [None]
  - Hypotension [None]
  - Pseudosepsis [None]
  - Gait disturbance [None]
